FAERS Safety Report 5983503-8 (Version None)
Quarter: 2008Q4

REPORT INFORMATION
  Report Type: 
  Country: None (occurrence: None)
  Receive Date: 20081208
  Receipt Date: 20081127
  Transmission Date: 20090506
  Serious: Yes (Death, Hospitalization)
  Sender: FDA-Public Use
  Company Number: JP-JNJFOC-20080904521

PATIENT
  Sex: Male

DRUGS (14)
  1. REMICADE [Suspect]
     Route: 042
  2. REMICADE [Suspect]
     Route: 042
  3. REMICADE [Suspect]
     Indication: RHEUMATOID ARTHRITIS
     Route: 042
  4. PREDNISOLONE [Suspect]
     Indication: RHEUMATOID ARTHRITIS
     Route: 048
  5. RHEUMATREX [Suspect]
     Indication: RHEUMATOID ARTHRITIS
     Route: 048
  6. TAKEPRON [Concomitant]
     Indication: GASTRITIS PROPHYLAXIS
     Route: 048
  7. ZALTOPROFEN [Concomitant]
     Indication: RHEUMATOID ARTHRITIS
     Route: 048
  8. MUCOSTA [Concomitant]
     Indication: GASTROINTESTINAL DISORDER THERAPY
     Route: 048
  9. TAMBOCOR [Concomitant]
     Route: 042
  10. GLUCOSE [Concomitant]
     Route: 042
  11. VASOLAN [Concomitant]
     Route: 042
  12. PENTASA [Concomitant]
     Route: 048
  13. NOR-ADRENALIN [Concomitant]
  14. INOVAN [Concomitant]

REACTIONS (6)
  - AMYLOIDOSIS [None]
  - CARDIO-RESPIRATORY ARREST [None]
  - COLITIS ULCERATIVE [None]
  - ENTEROCOLITIS [None]
  - GASTROENTERITIS SALMONELLA [None]
  - RENAL FAILURE ACUTE [None]
